FAERS Safety Report 16418908 (Version 1)
Quarter: 2019Q2

REPORT INFORMATION
  Report Type: Spontaneous
  Country: US (occurrence: US)
  Receive Date: 20190612
  Receipt Date: 20190612
  Transmission Date: 20190711
  Serious: No
  Sender: FDA-Public Use
  Company Number: US-JNJFOC-20190542544

PATIENT
  Age: 2 Year
  Sex: Female

DRUGS (2)
  1. MOTRIN INFANTS [Suspect]
     Active Substance: IBUPROFEN
     Indication: ACCIDENTAL EXPOSURE TO PRODUCT
     Dosage: HALF BOTTLE
     Route: 048
     Dates: start: 20190529
  2. MOTRIN INFANTS [Suspect]
     Active Substance: IBUPROFEN
     Route: 048

REACTIONS (1)
  - Accidental exposure to product [Unknown]

NARRATIVE: CASE EVENT DATE: 20190529
